FAERS Safety Report 8300354-X (Version None)
Quarter: 2012Q2

REPORT INFORMATION
  Report Type: 
  Country: None (occurrence: None)
  Receive Date: 20120420
  Receipt Date: 20120411
  Transmission Date: 20120825
  Serious: Yes (Other)
  Sender: FDA-Public Use
  Company Number: US-PFIZER INC-2012079441

PATIENT
  Age: 54 Year
  Sex: Female
  Weight: 58.957 kg

DRUGS (1)
  1. EPIPEN JR. [Suspect]

REACTIONS (4)
  - ACCIDENTAL EXPOSURE [None]
  - LOCAL SWELLING [None]
  - SKIN DISCOLOURATION [None]
  - EXPIRED DRUG ADMINISTERED [None]
